FAERS Safety Report 14771113 (Version 1)
Quarter: 2018Q2

REPORT INFORMATION
  Report Type: Spontaneous
  Country: US (occurrence: US)
  Receive Date: 20180417
  Receipt Date: 20180417
  Transmission Date: 20180711
  Serious: No
  Sender: FDA-Public Use
  Company Number: US-ALLERGAN-1801944US

PATIENT
  Sex: Female

DRUGS (2)
  1. LATISSE [Suspect]
     Active Substance: BIMATOPROST
     Dosage: 2 GTT, QHS
     Route: 061
  2. LATISSE [Suspect]
     Active Substance: BIMATOPROST
     Indication: GROWTH OF EYELASHES
     Dosage: 2 GTT, 3 TIMES A WEEK
     Route: 061
     Dates: end: 20180111

REACTIONS (5)
  - Blepharal pigmentation [Not Recovered/Not Resolved]
  - Inappropriate schedule of drug administration [Unknown]
  - Hair growth abnormal [Not Recovered/Not Resolved]
  - Madarosis [Not Recovered/Not Resolved]
  - Chalazion [Not Recovered/Not Resolved]

NARRATIVE: CASE EVENT DATE: 2017
